FAERS Safety Report 5468818-4 (Version None)
Quarter: 2007Q3

REPORT INFORMATION
  Report Type: 
  Country: None (occurrence: None)
  Receive Date: 20070926
  Receipt Date: 20070924
  Transmission Date: 20080115
  Serious: No
  Sender: FDA-Public Use
  Company Number: US-BOEHRINGER INGELHEIM PHARMACEUTICALS, INC.-2007-BP-07260BP

PATIENT
  Age: 84 Week
  Sex: Female
  Weight: 73 kg

DRUGS (4)
  1. MIRAPEX [Suspect]
     Indication: RESTLESS LEGS SYNDROME
     Route: 048
     Dates: start: 20070501
  2. MIRAPEX [Suspect]
     Route: 048
     Dates: start: 20070601
  3. NEXIUM [Concomitant]
     Dates: start: 20070418
  4. FOSAMAX [Concomitant]
     Dates: start: 20040702

REACTIONS (1)
  - DIARRHOEA [None]
